FAERS Safety Report 18801858 (Version 1)
Quarter: 2021Q1

REPORT INFORMATION
  Report Type: Not Available
  Country: GB (occurrence: GB)
  Receive Date: 20210128
  Receipt Date: 20210128
  Transmission Date: 20210419
  Serious: Yes (Hospitalization)
  Sender: FDA-Public Use
  Company Number: GB-SYNTHON BV-IN51PV20_57108

PATIENT
  Age: 82 Year
  Sex: Male

DRUGS (9)
  1. CLOPIDOGREL [Concomitant]
     Active Substance: CLOPIDOGREL BISULFATE
     Dosage: 75 MILLIGRAM, QD
  2. ATORVASTATIN [Concomitant]
     Active Substance: ATORVASTATIN
     Dosage: 40 MILLIGRAM, QD
  3. APIXABAN [Concomitant]
     Active Substance: APIXABAN
     Dosage: 5 MILLIGRAM, QD
  4. ACIDEX [CALCIUM CARBONATE;SODIUM ALGINATE;SODIUM BICARBONATE] [Concomitant]
     Active Substance: CALCIUM CARBONATE\SODIUM ALGINATE\SODIUM BICARBONATE
     Dosage: UNK
  5. LACTULOSE. [Concomitant]
     Active Substance: LACTULOSE
     Dosage: 3.1?3.7G/5ML THREE 5ML SPOONFULS TO BE TAKEN TWICE A DAY AS NECESSARY
  6. LORAZEPAM. [Suspect]
     Active Substance: LORAZEPAM
     Indication: AGITATION
     Dosage: UP TO 4 TIMES A DAY
  7. TAMSULOSIN [Suspect]
     Active Substance: TAMSULOSIN
     Indication: PRODUCT USED FOR UNKNOWN INDICATION
     Dosage: MORNING
  8. DECAPEPTYL?CR [Concomitant]
     Dosage: 11.25 MILLIGRAM
  9. LANSOPRAZOLE. [Concomitant]
     Active Substance: LANSOPRAZOLE
     Dosage: EACH MORNING

REACTIONS (3)
  - Blood pressure decreased [Unknown]
  - Delirium [Recovered/Resolved]
  - Confusional state [Unknown]
